FAERS Safety Report 5512677-8 (Version None)
Quarter: 2007Q4

REPORT INFORMATION
  Report Type: 
  Country: None (occurrence: None)
  Receive Date: 20071112
  Receipt Date: 20071106
  Transmission Date: 20080405
  Serious: Yes (Hospitalization)
  Sender: FDA-Public Use
  Company Number: FR-BRISTOL-MYERS SQUIBB COMPANY-13974555

PATIENT
  Age: 77 Year
  Sex: Female

DRUGS (9)
  1. COUMADIN [Suspect]
  2. THALIDOMIDE [Suspect]
     Indication: MULTIPLE MYELOMA
     Dosage: 200MG/DAY FROM JULY 2007.
     Dates: start: 20060701
  3. DEXAMETHASONE [Suspect]
     Indication: MULTIPLE MYELOMA
  4. LIPANOR [Concomitant]
  5. LOGIMAX [Concomitant]
  6. LYTOS [Concomitant]
  7. LASIX [Concomitant]
  8. MEDIATENSYL [Concomitant]
  9. SKENAN [Concomitant]

REACTIONS (3)
  - DYSPNOEA EXERTIONAL [None]
  - PULMONARY EMBOLISM [None]
  - PULMONARY HYPERTENSION [None]
